FAERS Safety Report 16773459 (Version 1)
Quarter: 2019Q4

REPORT INFORMATION
  Report Type: Spontaneous
  Country: US (occurrence: US)
  Receive Date: 20190904
  Receipt Date: 20190904
  Transmission Date: 20200122
  Serious: Yes (Other)
  Sender: FDA-Public Use
  Company Number: None

PATIENT
  Age: 73 Year
  Sex: Male
  Weight: 84.42 kg

DRUGS (1)
  1. CAPECITABINE. [Suspect]
     Active Substance: CAPECITABINE
     Indication: PROSTATE CANCER
     Dosage: ?          OTHER FREQUENCY:BID 7D ON, 7D OFF;?
     Route: 048
     Dates: start: 20190425, end: 20190904

REACTIONS (1)
  - Disease progression [None]

NARRATIVE: CASE EVENT DATE: 20190904
